FAERS Safety Report 4530807-1 (Version None)
Quarter: 2004Q4

REPORT INFORMATION
  Report Type: 
  Country: None (occurrence: None)
  Receive Date: 20041216
  Receipt Date: 20041206
  Transmission Date: 20050328
  Serious: No
  Sender: FDA-Public Use
  Company Number: FR_040904866

PATIENT
  Age: 43 Year
  Sex: Female
  Weight: 62 kg

DRUGS (1)
  1. ZYPREXA [Suspect]
     Indication: PSYCHOTIC DISORDER
     Dosage: 5 MG/1 DAY
     Dates: start: 20040309, end: 20040709

REACTIONS (3)
  - GALACTORRHOEA [None]
  - HYPERTROPHY BREAST [None]
  - MENORRHAGIA [None]
